FAERS Safety Report 15148288 (Version 1)
Quarter: 2018Q3

REPORT INFORMATION
  Report Type: Spontaneous
  Country: US (occurrence: US)
  Receive Date: 20180619
  Receipt Date: 20180619
  Transmission Date: 20181010
  Serious: No
  Sender: FDA-Public Use
  Company Number: None

PATIENT
  Age: 78 Year
  Sex: Male

DRUGS (1)
  1. IMATINIB MESYLATE 400 MG TEVA [Suspect]
     Active Substance: IMATINIB MESYLATE
     Indication: THERMAL BURN
     Route: 048
     Dates: start: 20180222

REACTIONS (2)
  - Rash generalised [None]
  - Swelling [None]

NARRATIVE: CASE EVENT DATE: 20180316
